FAERS Safety Report 6943968-1 (Version None)
Quarter: 2010Q3

REPORT INFORMATION
  Report Type: 
  Country: None (occurrence: None)
  Receive Date: 20100826
  Receipt Date: 20100701
  Transmission Date: 20110219
  Serious: Yes (Other)
  Sender: FDA-Public Use
  Company Number: PHHY2010US33207

PATIENT
  Sex: Female
  Weight: 54.422 kg

DRUGS (1)
  1. GLEEVEC [Suspect]
     Indication: CHRONIC MYELOID LEUKAEMIA
     Dosage: 400 MG, QD
     Route: 048
     Dates: start: 20100105, end: 20100315

REACTIONS (3)
  - HEPATIC ENZYME INCREASED [None]
  - HEPATITIS B [None]
  - RASH [None]
